FAERS Safety Report 5324209-8 (Version None)
Quarter: 2007Q2

REPORT INFORMATION
  Report Type: 
  Country: None (occurrence: None)
  Receive Date: 20070514
  Receipt Date: 20070504
  Transmission Date: 20071010
  Serious: Yes (Other)
  Sender: FDA-Public Use
  Company Number: AU-BRISTOL-MYERS SQUIBB COMPANY-13776653

PATIENT
  Age: 79 Year
  Sex: Female

DRUGS (1)
  1. METFORMIN HCL [Suspect]
     Route: 048
     Dates: start: 20010415

REACTIONS (2)
  - FAECAL INCONTINENCE [None]
  - FREQUENT BOWEL MOVEMENTS [None]
